FAERS Safety Report 13948869 (Version 1)
Quarter: 2017Q3

REPORT INFORMATION
  Report Type: Spontaneous
  Country: None (occurrence: DE)
  Receive Date: 20170908
  Receipt Date: 20170908
  Transmission Date: 20171128
  Serious: Yes (Life-Threatening)
  Sender: FDA-Public Use
  Company Number: DE-MEDAC PHARMA, INC.-2025751

PATIENT
  Age: 55 Year
  Sex: Female
  Weight: 72.5 kg

DRUGS (1)
  1. METEX (METHOTREXATE DISODIUM) [Suspect]
     Active Substance: METHOTREXATE SODIUM
     Indication: PSORIASIS
     Dates: start: 20170613, end: 20170828

REACTIONS (1)
  - Platelet count increased [Unknown]
